FAERS Safety Report 7167285-2 (Version None)
Quarter: 2010Q4

REPORT INFORMATION
  Report Type: 
  Country: None (occurrence: None)
  Receive Date: 20101216
  Receipt Date: 20101213
  Transmission Date: 20110411
  Serious: Yes (Hospitalization, Other)
  Sender: FDA-Public Use
  Company Number: US-MERCK-0903USA01370

PATIENT
  Age: 55 Year
  Sex: Female

DRUGS (4)
  1. FOSAMAX [Suspect]
     Indication: OSTEOARTHRITIS
     Route: 048
     Dates: start: 19990101, end: 20060915
  2. FOSAMAX [Suspect]
     Route: 048
     Dates: start: 20011001, end: 20051201
  3. FOSAMAX [Suspect]
     Indication: OSTEOPOROSIS
     Route: 048
     Dates: start: 19990101, end: 20060915
  4. FOSAMAX [Suspect]
     Route: 048
     Dates: start: 20011001, end: 20051201

REACTIONS (27)
  - ABSCESS [None]
  - ADVERSE DRUG REACTION [None]
  - ANAEMIA [None]
  - ASTHMA [None]
  - BACK PAIN [None]
  - BONE DENSITY DECREASED [None]
  - BRONCHITIS [None]
  - CARPAL TUNNEL SYNDROME [None]
  - CHRONIC OBSTRUCTIVE PULMONARY DISEASE [None]
  - DENTAL CARIES [None]
  - DEPRESSION [None]
  - DYSPNOEA [None]
  - EYE DISORDER [None]
  - GLAUCOMA [None]
  - HERPES ZOSTER [None]
  - HYPERCHOLESTEROLAEMIA [None]
  - HYPERHIDROSIS [None]
  - HYPERTRIGLYCERIDAEMIA [None]
  - NEPHROLITHIASIS [None]
  - ORAL INFECTION [None]
  - OSTEOMYELITIS [None]
  - OSTEONECROSIS OF JAW [None]
  - SEBORRHOEIC DERMATITIS [None]
  - SINUS HEADACHE [None]
  - SINUSITIS [None]
  - TOOTH ABSCESS [None]
  - TOOTH FRACTURE [None]
